FAERS Safety Report 7818153-1 (Version None)
Quarter: 2011Q4

REPORT INFORMATION
  Report Type: 
  Country: None (occurrence: None)
  Receive Date: 20111017
  Receipt Date: 20111010
  Transmission Date: 20120403
  Serious: Yes (Hospitalization, Other)
  Sender: FDA-Public Use
  Company Number: MX-SANOFI-AVENTIS-2011SA066457

PATIENT
  Age: 64 Year
  Sex: Female

DRUGS (3)
  1. BI-EUGLUCON [Suspect]
     Indication: TYPE 2 DIABETES MELLITUS
     Dates: start: 19970101
  2. LANTUS [Suspect]
     Indication: TYPE 2 DIABETES MELLITUS
     Route: 058
     Dates: start: 20030101, end: 20110930
  3. LANTUS [Suspect]
     Route: 058
     Dates: start: 20110930

REACTIONS (4)
  - TIBIA FRACTURE [None]
  - DIZZINESS [None]
  - ASTHENIA [None]
  - HYPERGLYCAEMIA [None]
